FAERS Safety Report 7575337-8 (Version None)
Quarter: 2011Q2

REPORT INFORMATION
  Report Type: 
  Country: None (occurrence: None)
  Receive Date: 20110627
  Receipt Date: 20110617
  Transmission Date: 20111010
  Serious: Yes (Hospitalization, Other)
  Sender: FDA-Public Use
  Company Number: US-ASTRAZENECA-2011SE26735

PATIENT
  Age: 62 Year
  Sex: Female

DRUGS (1)
  1. NEXIUM [Suspect]
     Route: 048

REACTIONS (6)
  - ARTHROSCOPIC SURGERY [None]
  - OSTEOARTHRITIS [None]
  - KNEE OPERATION [None]
  - MENISCUS LESION [None]
  - JOINT EFFUSION [None]
  - MENISCUS REMOVAL [None]
